FAERS Safety Report 4299136-8 (Version None)
Quarter: 2004Q1

REPORT INFORMATION
  Report Type: 
  Country: None (occurrence: None)
  Receive Date: 20040217
  Receipt Date: 20040203
  Transmission Date: 20041129
  Serious: Yes (Other)
  Sender: FDA-Public Use
  Company Number: 2004-112619-NL

PATIENT
  Age: 35 Year
  Sex: Female

DRUGS (3)
  1. REMERON [Suspect]
     Indication: ANXIETY
  2. REMERON [Suspect]
     Indication: STRESS SYMPTOMS
  3. TYLENOL (CAPLET) [Concomitant]

REACTIONS (2)
  - MATERNAL DRUGS AFFECTING FOETUS [None]
  - PREGNANCY [None]
